FAERS Safety Report 23859646 (Version 1)
Quarter: 2024Q2

REPORT INFORMATION
  Report Type: Spontaneous
  Country: US (occurrence: None)
  Receive Date: 20240515
  Receipt Date: 20240515
  Transmission Date: 20240716
  Serious: Yes (Life-Threatening, Hospitalization)
  Sender: FDA-Public Use
  Company Number: None

PATIENT
  Age: 96 Year
  Sex: Female
  Weight: 68 kg

DRUGS (1)
  1. RIVAROXABAN [Suspect]
     Active Substance: RIVAROXABAN
     Indication: Deep vein thrombosis
     Dosage: FREQUENCY : DAILY;?
     Route: 048
     Dates: start: 20240103, end: 20240204

REACTIONS (7)
  - Fall [None]
  - Eye swelling [None]
  - Lethargy [None]
  - Muscle twitching [None]
  - Subdural haematoma [None]
  - Subarachnoid haemorrhage [None]
  - Scalp haematoma [None]

NARRATIVE: CASE EVENT DATE: 20240204
